FAERS Safety Report 6279225-9 (Version None)
Quarter: 2009Q3

REPORT INFORMATION
  Report Type: 
  Country: None (occurrence: None)
  Receive Date: 20090723
  Receipt Date: 20080819
  Transmission Date: 20100115
  Serious: No
  Sender: FDA-Public Use
  Company Number: US-AMGEN-KDL302755

PATIENT
  Sex: Female
  Weight: 57.7 kg

DRUGS (9)
  1. PROCRIT [Suspect]
     Indication: RENAL FAILURE CHRONIC
  2. PROZAC [Concomitant]
  3. VYTORIN [Concomitant]
  4. PLENDIL [Concomitant]
  5. DILANTIN [Concomitant]
  6. ATENOLOL [Concomitant]
  7. OMEPRAZOLE [Concomitant]
  8. IRON [Concomitant]
  9. CENTRUM [Concomitant]

REACTIONS (4)
  - CONSTIPATION [None]
  - DRY THROAT [None]
  - HEADACHE [None]
  - INFLUENZA [None]
